FAERS Safety Report 9895769 (Version 1)
Quarter: 2014Q1

REPORT INFORMATION
  Report Type: Spontaneous
  Country: US (occurrence: US)
  Receive Date: 20140213
  Receipt Date: 20140213
  Transmission Date: 20141002
  Serious: No
  Sender: FDA-Public Use
  Company Number: US-BRISTOL-MYERS SQUIBB COMPANY-19448851

PATIENT
  Age: 47 Year
  Sex: Female
  Weight: 61.22 kg

DRUGS (4)
  1. ABATACEPT SUBQ INJECTION 125MG/ML [Suspect]
     Dosage: PFS (4 PACK),1DF: 125MG/ML
  2. NASONEX [Concomitant]
     Dosage: NASONEX SPR,BEFORE MEALS
  3. CALCIUM [Concomitant]
     Dosage: TABS,1DF: 500 UNITS NOS
  4. FISH OIL [Concomitant]
     Dosage: FISH OIL CAPS

REACTIONS (1)
  - Oedema peripheral [Unknown]
